FAERS Safety Report 8956263 (Version 1)
Quarter: 2012Q4

REPORT INFORMATION
  Report Type: 
  Country: US (occurrence: US)
  Receive Date: 20121210
  Receipt Date: 20121210
  Transmission Date: 20130627
  Serious: Yes (Hospitalization, Other)
  Sender: FDA-Public Use
  Company Number: US-ASTELLAS-2012US011875

PATIENT
  Sex: Female

DRUGS (5)
  1. TARCEVA [Suspect]
     Indication: LUNG ADENOCARCINOMA
     Dosage: 150 mg, UID/QD
     Route: 048
     Dates: start: 201201, end: 201203
  2. TARCEVA [Suspect]
     Dosage: 100 mg, UID/QD
     Route: 048
     Dates: start: 201203, end: 201206
  3. TARCEVA [Suspect]
     Dosage: 100 mg, qod
     Route: 048
     Dates: start: 201207, end: 20120824
  4. LOVENOX [Concomitant]
     Indication: HYPERCOAGULATION
     Dosage: UNK
     Route: 065
     Dates: end: 201206
  5. LOVENOX [Concomitant]
     Dosage: UNK
     Route: 065
     Dates: start: 20120701

REACTIONS (14)
  - Pulmonary embolism [Unknown]
  - Faecaloma [Unknown]
  - Starvation [Unknown]
  - Vomiting [Unknown]
  - Weight decreased [Unknown]
  - Diarrhoea [Unknown]
  - Constipation [Unknown]
  - Nausea [Unknown]
  - Decreased appetite [Unknown]
  - Ageusia [Unknown]
  - Fall [Unknown]
  - Head injury [Unknown]
  - Asthenia [Unknown]
  - Eructation [Unknown]
